FAERS Safety Report 14678415 (Version 2)
Quarter: 2018Q1

REPORT INFORMATION
  Report Type: Spontaneous
  Country: US (occurrence: US)
  Receive Date: 20180326
  Receipt Date: 20180329
  Transmission Date: 20180509
  Serious: No
  Sender: FDA-Public Use
  Company Number: US-TEVA-2018-US-864336

PATIENT
  Sex: Female

DRUGS (1)
  1. CLONAZEPAM. [Suspect]
     Active Substance: CLONAZEPAM
     Indication: MYOCLONUS
     Route: 048
     Dates: start: 2017

REACTIONS (2)
  - Gait disturbance [Not Recovered/Not Resolved]
  - Dysgraphia [Unknown]

NARRATIVE: CASE EVENT DATE: 2017
